FAERS Safety Report 8936321 (Version 1)
Quarter: 2012Q4

REPORT INFORMATION
  Report Type: 
  Country: GB (occurrence: GB)
  Receive Date: 20121130
  Receipt Date: 20121130
  Transmission Date: 20130627
  Serious: Yes (Other)
  Sender: FDA-Public Use
  Company Number: GB-BAYER-2012-123822

PATIENT
  Age: 44 Year
  Sex: Female
  Weight: 63.49 kg

DRUGS (1)
  1. MIRENA [Suspect]
     Indication: MENORRHAGIA
     Dosage: 20 mcg/24hr, CONT
     Route: 015
     Dates: start: 20120628, end: 20120809

REACTIONS (1)
  - Hot flush [Recovered/Resolved]
